FAERS Safety Report 7331352-0 (Version None)
Quarter: 2011Q1

REPORT INFORMATION
  Report Type: 
  Country: None (occurrence: None)
  Receive Date: 20110304
  Receipt Date: 20110208
  Transmission Date: 20110831
  Serious: Yes (Hospitalization, Other)
  Sender: FDA-Public Use
  Company Number: US-BAYER-201025152NA

PATIENT
  Sex: Female
  Weight: 74 kg

DRUGS (3)
  1. YASMIN [Suspect]
     Indication: PRODUCT USED FOR UNKNOWN INDICATION
     Route: 048
  2. OCELLA [Suspect]
     Indication: PRODUCT USED FOR UNKNOWN INDICATION
     Route: 048
  3. YAZ [Suspect]
     Indication: PRODUCT USED FOR UNKNOWN INDICATION
     Dosage: UNK
     Route: 048
     Dates: start: 20100101

REACTIONS (6)
  - PULMONARY EMBOLISM [None]
  - GASTROOESOPHAGEAL REFLUX DISEASE [None]
  - DEEP VEIN THROMBOSIS [None]
  - FLUID RETENTION [None]
  - DYSPNOEA [None]
  - OEDEMA PERIPHERAL [None]
